FAERS Safety Report 7576247-2 (Version None)
Quarter: 2011Q2

REPORT INFORMATION
  Report Type: 
  Country: None (occurrence: None)
  Receive Date: 20110628
  Receipt Date: 20110613
  Transmission Date: 20111010
  Serious: Yes (Disabling)
  Sender: FDA-Public Use
  Company Number: JP-BAYER-2011-051200

PATIENT
  Age: 86 Year
  Sex: Male

DRUGS (6)
  1. ALOSITOL [Concomitant]
     Dosage: DAILY DOSE 100 MG
     Route: 048
  2. LIPITOR [Concomitant]
     Dosage: DAILY DOSE 10 MG
     Route: 048
  3. ADALAT CC [Suspect]
     Indication: HYPERTENSION
     Dosage: 20 MG, QD
     Route: 048
     Dates: start: 20100723, end: 20110218
  4. DILTIAZEM HCL [Concomitant]
     Indication: HYPERTENSION
     Dosage: DAILY DOSE 100 MG
     Route: 048
     Dates: end: 20100723
  5. FAMOTIDINE [Concomitant]
     Dosage: DAILY DOSE 10 MG
     Route: 048
  6. ISOSORBIDE DINITRATE [Concomitant]
     Dosage: DAILY DOSE 40 MG
     Route: 048

REACTIONS (1)
  - RENAL IMPAIRMENT [None]
